FAERS Safety Report 5004385-7 (Version None)
Quarter: 2006Q2

REPORT INFORMATION
  Report Type: 
  Country: None (occurrence: None)
  Receive Date: 20060511
  Receipt Date: 20060428
  Transmission Date: 20061013
  Serious: Yes (Other)
  Sender: FDA-Public Use
  Company Number: T200600172

PATIENT
  Age: 25 Year
  Sex: Female

DRUGS (7)
  1. METHADOSE [Suspect]
     Indication: BACK PAIN
     Dosage: SEE IMAGE
     Route: 048
     Dates: start: 20040101, end: 20060101
  2. METHADOSE [Suspect]
     Indication: BACK PAIN
     Dosage: SEE IMAGE
     Route: 048
     Dates: start: 20040101, end: 20060101
  3. METHADOSE [Suspect]
     Indication: BACK PAIN
     Dosage: SEE IMAGE
     Route: 048
     Dates: start: 20040101, end: 20060101
  4. ALBUTEROL /00139501/ (SALBUTAMOL) [Concomitant]
  5. PERCOCET /00446701/ (PARACETAMOL, OXYCODONE HYDROCHLORIDE, OXYCODONE T [Concomitant]
  6. TRAZODONE HCL [Concomitant]
  7. MUSCLE RELAXANTS [Concomitant]

REACTIONS (5)
  - ANGER [None]
  - DYSPNOEA [None]
  - HYPOVENTILATION [None]
  - INCOHERENT [None]
  - LOSS OF CONSCIOUSNESS [None]
